FAERS Safety Report 5264363-X (Version None)
Quarter: 2007Q1

REPORT INFORMATION
  Report Type: 
  Country: None (occurrence: None)
  Receive Date: 20061213
  Receipt Date: 20041221
  Transmission Date: 20070707
  Serious: Yes (Other)
  Sender: FDA-Public Use
  Company Number: 2004UW07485

PATIENT
  Age: 42 Year
  Sex: Female
  Weight: 48.0813 kg

DRUGS (4)
  1. IRESSA [Suspect]
     Indication: NON-SMALL CELL LUNG CANCER
     Dosage: 250 MG PO
     Route: 048
     Dates: start: 20040301
  2. TRILEPTAL [Concomitant]
  3. CELEBREX [Concomitant]
  4. LOMOTIL [Concomitant]

REACTIONS (8)
  - DERMAL CYST [None]
  - DRY SKIN [None]
  - EYE MOVEMENT DISORDER [None]
  - FACE OEDEMA [None]
  - LOCALISED INFECTION [None]
  - RASH [None]
  - VISION BLURRED [None]
  - WEIGHT FLUCTUATION [None]
